FAERS Safety Report 8586710-3 (Version None)
Quarter: 2012Q3

REPORT INFORMATION
  Report Type: 
  Country: None (occurrence: None)
  Receive Date: 20120810
  Receipt Date: 20120808
  Transmission Date: 20120928
  Serious: Yes (Other)
  Sender: FDA-Public Use
  Company Number: US-PFIZER INC-2012194238

PATIENT
  Age: 42 Year
  Sex: Female
  Weight: 48.073 kg

DRUGS (4)
  1. MIDOL PM CAPLETS [Concomitant]
     Dosage: UNK
  2. ASCORBIC ACID [Concomitant]
     Dosage: UNK
  3. CHANTIX [Suspect]
     Dosage: 1 MG, 2X/DAY
     Route: 048
     Dates: start: 20120101, end: 20120801
  4. CHANTIX [Suspect]
     Indication: SMOKING CESSATION THERAPY
     Dosage: 0.5 MG, 1X/DAY
     Route: 048
     Dates: start: 20120731, end: 20120101

REACTIONS (4)
  - MALAISE [None]
  - ABDOMINAL PAIN UPPER [None]
  - HYPERSENSITIVITY [None]
  - INFREQUENT BOWEL MOVEMENTS [None]
